FAERS Safety Report 4883206-7 (Version None)
Quarter: 2006Q1

REPORT INFORMATION
  Report Type: 
  Country: None (occurrence: None)
  Receive Date: 20060117
  Receipt Date: 20060117
  Transmission Date: 20060701
  Serious: Yes (Hospitalization)
  Sender: FDA-Public Use
  Company Number: None

PATIENT
  Age: 31 Year
  Sex: Female
  Weight: 61.2 kg

DRUGS (2)
  1. NYQUIL COLD/FLU DOXYLAMINE (DEXTROMETHORPHAN HYDROBROMIDE 10 OR 15 MG, [Suspect]
     Indication: INFLUENZA
     Dosage: 2 LIQCAP, EVENING FOR 1 DAY, ORAL
     Route: 048
     Dates: start: 20050209, end: 20050209
  2. BIRTH CONTROL [Concomitant]

REACTIONS (8)
  - BACK PAIN [None]
  - DEHYDRATION [None]
  - DIARRHOEA [None]
  - HEAD INJURY [None]
  - LOSS OF CONSCIOUSNESS [None]
  - NAUSEA [None]
  - SYNCOPE [None]
  - VOMITING [None]
